FAERS Safety Report 9766151 (Version 1)
Quarter: 2013Q4

REPORT INFORMATION
  Report Type: Spontaneous
  Country: US (occurrence: US)
  Receive Date: 20131217
  Receipt Date: 20131217
  Transmission Date: 20140711
  Serious: No
  Sender: FDA-Public Use
  Company Number: US-GLAXOSMITHKLINE-A1020127A

PATIENT
  Age: 70 Year
  Sex: Female
  Weight: 66.8 kg

DRUGS (1)
  1. VOTRIENT [Suspect]
     Indication: RENAL CANCER METASTATIC
     Dosage: 800MG PER DAY
     Route: 065

REACTIONS (7)
  - Blood pressure increased [Recovering/Resolving]
  - Abdominal distension [Recovering/Resolving]
  - Dizziness [Recovering/Resolving]
  - Nail disorder [Recovering/Resolving]
  - Malaise [Recovering/Resolving]
  - Adverse drug reaction [Recovering/Resolving]
  - Hypertension [Recovering/Resolving]
